FAERS Safety Report 24354145 (Version 3)
Quarter: 2025Q2

REPORT INFORMATION
  Report Type: Report from Study
  Country: US (occurrence: US)
  Receive Date: 20240923
  Receipt Date: 20250613
  Transmission Date: 20250716
  Serious: No
  Sender: SUNOVION
  Company Number: US-SUMITOMO PHARMA SWITZERLAND GMBH-2024SPA002056

PATIENT

DRUGS (2)
  1. ORGOVYX [Suspect]
     Active Substance: RELUGOLIX
     Indication: Prostate cancer
     Route: 048
     Dates: start: 20230907, end: 20230907
  2. ORGOVYX [Suspect]
     Active Substance: RELUGOLIX
     Dosage: 120 MG, QD
     Route: 048
     Dates: start: 20230908

REACTIONS (7)
  - Bronchitis [Recovered/Resolved]
  - Pain [Unknown]
  - General physical health deterioration [Unknown]
  - Depressed mood [Unknown]
  - Hyperhidrosis [Unknown]
  - Headache [Unknown]
  - Asthenia [Unknown]
